FAERS Safety Report 8416276-X (Version None)
Quarter: 2012Q2

REPORT INFORMATION
  Report Type: 
  Country: None (occurrence: None)
  Receive Date: 20120606
  Receipt Date: 20120525
  Transmission Date: 20120825
  Serious: Yes (Hospitalization)
  Sender: FDA-Public Use
  Company Number: US-ELI_LILLY_AND_COMPANY-US201204008546

PATIENT
  Age: 62 Year
  Sex: Female
  Weight: 95 kg

DRUGS (8)
  1. DILTIAZEM [Concomitant]
  2. CYMBALTA [Suspect]
     Indication: PAIN IN EXTREMITY
     Dosage: 30 MG, QD
     Dates: start: 20120201, end: 20120401
  3. FUROSEMIDE [Concomitant]
  4. CYMBALTA [Suspect]
     Dosage: 30 MG, QD
     Dates: start: 20120401
  5. SUBOXONE [Concomitant]
     Indication: DRUG DEPENDENCE
  6. ANTIHYPERTENSIVES [Concomitant]
  7. COUMADIN [Concomitant]
  8. PRAVASTATIN [Concomitant]

REACTIONS (9)
  - DRUG WITHDRAWAL SYNDROME [None]
  - CHEST PAIN [None]
  - NAUSEA [None]
  - VOMITING [None]
  - HYPERHIDROSIS [None]
  - CHILLS [None]
  - BACK PAIN [None]
  - ABDOMINAL PAIN UPPER [None]
  - PAIN [None]
